FAERS Safety Report 12721913 (Version 2)
Quarter: 2016Q4

REPORT INFORMATION
  Report Type: Spontaneous
  Country: FR (occurrence: FR)
  Receive Date: 20160907
  Receipt Date: 20161021
  Transmission Date: 20170207
  Serious: Yes (Hospitalization, Other)
  Sender: FDA-Public Use
  Company Number: FR-SA-2016SA158658

PATIENT
  Age: 67 Year
  Sex: Female
  Weight: 73 kg

DRUGS (7)
  1. SINEMET [Concomitant]
     Active Substance: CARBIDOPA\LEVODOPA
     Indication: PARKINSON^S DISEASE
     Dates: start: 199412
  2. CEREZYME [Suspect]
     Active Substance: IMIGLUCERASE
     Indication: GAUCHER^S DISEASE TYPE I
     Route: 041
     Dates: start: 199611, end: 19970715
  3. DIAMICRON [Concomitant]
     Active Substance: GLICLAZIDE
  4. CEREZYME [Suspect]
     Active Substance: IMIGLUCERASE
     Indication: GAUCHER^S DISEASE TYPE I
     Route: 041
     Dates: start: 19941110, end: 1996
  5. GLUCOPHAGE [Concomitant]
     Active Substance: METFORMIN HYDROCHLORIDE
  6. SINEMET [Concomitant]
     Active Substance: CARBIDOPA\LEVODOPA
     Indication: PARKINSON^S DISEASE
     Dates: start: 1997
  7. INSULIN NOVO LENTE [Concomitant]
     Dosage: 22 IU IN THE MORNING AND 20U IN THE EVENING

REACTIONS (28)
  - Hydrocephalus [Unknown]
  - Urinary tract infection [Unknown]
  - Bone infarction [Unknown]
  - Urinary incontinence [Unknown]
  - Arthralgia [Unknown]
  - Obstructive airways disorder [Unknown]
  - Systolic dysfunction [Unknown]
  - Escherichia infection [Unknown]
  - Walking aid user [Unknown]
  - Oedema peripheral [Unknown]
  - Hepatic steatosis [Unknown]
  - Hepatomegaly [Unknown]
  - Cardiac murmur [Unknown]
  - Serum ferritin abnormal [Unknown]
  - Condition aggravated [Unknown]
  - Joint effusion [Unknown]
  - Osteoarthritis [Unknown]
  - Cough [Recovered/Resolved]
  - Peripheral venous disease [Unknown]
  - Pulmonary arterial hypertension [Not Recovered/Not Resolved]
  - Dyspnoea exertional [Unknown]
  - Crepitations [Recovering/Resolving]
  - Asthenia [Unknown]
  - Gait disturbance [Unknown]
  - Anal incontinence [Unknown]
  - Mitral valve calcification [Unknown]
  - Bronchitis [Recovering/Resolving]
  - Wheezing [Recovering/Resolving]

NARRATIVE: CASE EVENT DATE: 19961010
